FAERS Safety Report 10034156 (Version 1)
Quarter: 2014Q1

REPORT INFORMATION
  Report Type: Spontaneous
  Country: US (occurrence: None)
  Receive Date: 20140324
  Receipt Date: 20140324
  Transmission Date: 20141002
  Serious: Yes (Life-Threatening, Hospitalization)
  Sender: FDA-Public Use
  Company Number: None

PATIENT
  Age: 51 Year
  Sex: Male
  Weight: 99.79 kg

DRUGS (1)
  1. NUCYNTA ER [Suspect]
     Indication: BACK PAIN
     Dosage: 2 EVERY 12 HOURS ?TWICE DAILY?TAKEN BY MOUTH
     Route: 048

REACTIONS (1)
  - Serotonin syndrome [None]
